FAERS Safety Report 9253674 (Version 1)
Quarter: 2013Q2

REPORT INFORMATION
  Report Type: Spontaneous
  Country: US (occurrence: US)
  Receive Date: 20130425
  Receipt Date: 20130425
  Transmission Date: 20140414
  Serious: Yes (Hospitalization)
  Sender: FDA-Public Use
  Company Number: US-RANBAXY-2005US-00719

PATIENT
  Age: 62 Year
  Sex: Male

DRUGS (5)
  1. CIPROFLOXACIN [Suspect]
     Indication: OSTEOMYELITIS
     Dosage: UNK
     Route: 048
  2. MAGNESIUM HYDROXIDE [Interacting]
     Indication: DYSPEPSIA
     Dosage: UNK
     Route: 065
  3. FERROUS GLUCONATE [Interacting]
     Indication: PRODUCT USED FOR UNKNOWN INDICATION
     Dosage: UNK
     Route: 065
  4. CALCIUM CARBONATE [Suspect]
     Indication: DYSPEPSIA
     Dosage: UNK
     Route: 065
  5. CLINDAMYCIN [Concomitant]
     Indication: OSTEOMYELITIS
     Dosage: UNK
     Route: 048

REACTIONS (3)
  - Drug interaction [Unknown]
  - Drug ineffective [Unknown]
  - Pneumonia [Recovering/Resolving]
